FAERS Safety Report 9537177 (Version 5)
Quarter: 2014Q1

REPORT INFORMATION
  Report Type: Spontaneous
  Country: GB (occurrence: GB)
  Receive Date: 20130919
  Receipt Date: 20140115
  Transmission Date: 20141002
  Serious: Yes (Hospitalization)
  Sender: FDA-Public Use
  Company Number: PHFR2013GB004387

PATIENT
  Age: 47 Year
  Sex: Female

DRUGS (17)
  1. CLOZARIL [Suspect]
     Indication: SCHIZOPHRENIA
     Dosage: UNK
     Route: 048
     Dates: start: 20110616
  2. CLOZARIL [Suspect]
     Dosage: UNK
     Route: 048
     Dates: start: 20131009
  3. SODIUM VALPROATE [Concomitant]
     Dosage: 1000 MG, BID
  4. CHLORPHENIRAMINE [Concomitant]
     Dosage: 12 MG, UNK
  5. PIRENZEPINE [Concomitant]
     Dosage: 50 MG, TID
  6. OMEPRAZOLE [Concomitant]
     Dosage: 40 MG, BID
  7. FUROSEMIDE [Concomitant]
     Dosage: 40 MG, ONCE A DAY
  8. PARACETAMOL [Concomitant]
     Dosage: 1 G, 4 TIMES A DAY
  9. MOVICOL [Concomitant]
     Dosage: 1SACHET 4 TIMES A DAY
  10. FUSIDIC ACID [Concomitant]
     Dosage: FOUR TIMES A DAY
     Route: 061
  11. DIAZEPAM [Concomitant]
     Dosage: 2 MG, TID AND TWICE A DAY PRN
  12. DICLOFENAC [Concomitant]
     Dosage: 50 MG, UNK
  13. METOCLOPRAMIDE [Concomitant]
     Dosage: 10 MG, TID
  14. CM PROMETHAZINE [Concomitant]
     Dosage: 25 MG, FOUR TIMES A DAY
  15. QUETIAPINE [Concomitant]
     Dosage: 50 TO 70 MG MAXIMUM TO 75 MG IN 24 HOUR
  16. ARIPIPRAZOLE [Concomitant]
     Dosage: UNK
  17. OLANZAPIN [Concomitant]
     Dosage: UNK UKN, UNK

REACTIONS (5)
  - Renal cancer [Unknown]
  - Hallucination [Unknown]
  - Neutrophil count decreased [Recovered/Resolved]
  - White blood cell count increased [Recovered/Resolved]
  - Neutrophil count increased [Recovered/Resolved]
